FAERS Safety Report 21543915 (Version 1)
Quarter: 2022Q4

REPORT INFORMATION
  Report Type: Report from Study
  Country: NL (occurrence: NL)
  Receive Date: 20221102
  Receipt Date: 20221102
  Transmission Date: 20230113
  Serious: Yes (Hospitalization)
  Sender: FDA-Public Use
  Company Number: NL-ABBVIE-4184616

PATIENT
  Sex: Female

DRUGS (7)
  1. CARBIDOPA\LEVODOPA [Suspect]
     Active Substance: CARBIDOPA\LEVODOPA
     Indication: Parkinson^s disease
     Dosage: MD: 12.5 ML, CD: 4.2 ML/H, ED: 2.5 ML? DURATION TEXT: REMAINS AT 16 HOURS
     Route: 050
  2. CARBIDOPA\LEVODOPA [Suspect]
     Active Substance: CARBIDOPA\LEVODOPA
     Dosage: DURATION TEXT: REMAINS AT 24 HOURS
     Route: 050
     Dates: start: 20200106
  3. CARBIDOPA\LEVODOPA [Suspect]
     Active Substance: CARBIDOPA\LEVODOPA
     Dosage: MD: 12.5 ML, CD: 4.2 ML/H, ED: 2.5 ML; ND: 0.0 ML; CND: 3.6 ML/H; END: 2.5 ML?DURATION TEXT: REMA...
     Route: 050
  4. CARBIDOPA\LEVODOPA [Suspect]
     Active Substance: CARBIDOPA\LEVODOPA
     Dosage: MD: 12.5 ML, CD: 4.3 ML/H, ED: 2.5 ML; CND: 3.6 ML/H?DURATION TEXT: REMAINS AT 16 HOURS
     Route: 050
  5. CLOZAPINE [Concomitant]
     Active Substance: CLOZAPINE
     Indication: Hallucination
  6. BENSERAZIDE HYDROCHLORIDE\LEVODOPA [Concomitant]
     Active Substance: BENSERAZIDE HYDROCHLORIDE\LEVODOPA
     Indication: Parkinson^s disease
     Dosage: STRENGTH 250 MILLIGRAM
  7. OXYCODONE [Concomitant]
     Active Substance: OXYCODONE
     Indication: Product used for unknown indication
     Dates: start: 20210301

REACTIONS (2)
  - Fall [Recovered/Resolved]
  - Contusion [Not Recovered/Not Resolved]

NARRATIVE: CASE EVENT DATE: 20221026
